FAERS Safety Report 22596743 (Version 1)
Quarter: 2023Q2

REPORT INFORMATION
  Report Type: Spontaneous
  Country: US (occurrence: US)
  Receive Date: 20230613
  Receipt Date: 20230613
  Transmission Date: 20230721
  Serious: Yes (Other)
  Sender: FDA-Public Use
  Company Number: US-KYOWAKIRIN-2023BKK008625

PATIENT

DRUGS (1)
  1. POTELIGEO [Suspect]
     Active Substance: MOGAMULIZUMAB-KPKC
     Indication: Acute lymphocytic leukaemia
     Dosage: FREQUENCY WAS DECREASED TO EVERY 28 DAYS IN CYCLES 5 AND 6 (6 CYCLE COMPLETED)
     Route: 065

REACTIONS (8)
  - Ophthalmoplegia [Unknown]
  - Exophthalmos [Unknown]
  - Myasthenia gravis [Unknown]
  - Myositis [Unknown]
  - Muscular weakness [Unknown]
  - Tachycardia [Unknown]
  - Hepatic enzyme increased [Unknown]
  - Hypertension [Unknown]
